FAERS Safety Report 14258874 (Version 1)
Quarter: 2017Q4

REPORT INFORMATION
  Report Type: Spontaneous
  Country: US (occurrence: None)
  Receive Date: 20171207
  Receipt Date: 20171207
  Transmission Date: 20180321
  Serious: Yes (Hospitalization)
  Sender: FDA-Public Use
  Company Number: None

PATIENT
  Age: 65 Year
  Sex: Female
  Weight: 86 kg

DRUGS (14)
  1. FUROSEMIDE. [Concomitant]
     Active Substance: FUROSEMIDE
  2. SINGULAIR [Concomitant]
     Active Substance: MONTELUKAST SODIUM
  3. MELOXICAM. [Concomitant]
     Active Substance: MELOXICAM
  4. PROCHLORPERAZINE. [Concomitant]
     Active Substance: PROCHLORPERAZINE
  5. TESSALON [Concomitant]
     Active Substance: BENZONATATE
  6. FENTANYL. [Concomitant]
     Active Substance: FENTANYL
  7. POTASSIUM [Concomitant]
     Active Substance: POTASSIUM
  8. SPIRONOLACTONE. [Concomitant]
     Active Substance: SPIRONOLACTONE
  9. LENALIDOMIDE (CC-5013) [Suspect]
     Active Substance: LENALIDOMIDE
     Dates: end: 20171105
  10. LORATADINE. [Concomitant]
     Active Substance: LORATADINE
  11. OMEPRAZOLE. [Concomitant]
     Active Substance: OMEPRAZOLE
  12. FLUOXETINE [Concomitant]
     Active Substance: FLUOXETINE HYDROCHLORIDE
  13. ONDANSETRON [Concomitant]
     Active Substance: ONDANSETRON
  14. TRAMADOL. [Concomitant]
     Active Substance: TRAMADOL

REACTIONS (6)
  - Diarrhoea [None]
  - Flank pain [None]
  - Hypertension [None]
  - Vomiting [None]
  - Small intestinal obstruction [None]
  - Urinary tract infection [None]

NARRATIVE: CASE EVENT DATE: 20171126
